FAERS Safety Report 7321491-2 (Version None)
Quarter: 2011Q1

REPORT INFORMATION
  Report Type: 
  Country: None (occurrence: None)
  Receive Date: 20110228
  Receipt Date: 20100628
  Transmission Date: 20110831
  Serious: Yes (Other)
  Sender: FDA-Public Use
  Company Number: US-PFIZER INC-2010017824

PATIENT
  Sex: Female

DRUGS (5)
  1. GEODON [Suspect]
     Indication: MANIA
     Dosage: 80 MG, 2X/DAY
     Dates: end: 20100126
  2. GEODON [Suspect]
     Indication: BIPOLAR DISORDER
     Dosage: 60 MG, 2X/DAY
     Dates: start: 20091123
  3. LITHIUM [Concomitant]
     Dosage: UNK
     Dates: start: 20100107, end: 20100401
  4. BISOPROLOL [Concomitant]
     Indication: HYPERTENSION
     Dosage: 5 MG, 1X/DAY
  5. LEVOTHYROXINE [Concomitant]
     Indication: HYPOTHYROIDISM
     Dosage: 0.088 MG, 1X/DAY

REACTIONS (2)
  - DYSKINESIA [None]
  - AKATHISIA [None]
